FAERS Safety Report 12834293 (Version 1)
Quarter: 2016Q4

REPORT INFORMATION
  Report Type: Spontaneous
  Country: US (occurrence: US)
  Receive Date: 20161010
  Receipt Date: 20161010
  Transmission Date: 20170207
  Serious: Yes (Other)
  Sender: FDA-Public Use
  Company Number: US-JNJFOC-20161005683

PATIENT
  Sex: Male
  Weight: 62.3 kg

DRUGS (1)
  1. RISPERDAL [Suspect]
     Active Substance: RISPERIDONE
     Indication: AUTISM
     Dosage: 0.5 AND 0.75MG
     Route: 048
     Dates: start: 200207

REACTIONS (1)
  - Obesity [Recovering/Resolving]

NARRATIVE: CASE EVENT DATE: 2002
